FAERS Safety Report 13290923 (Version 2)
Quarter: 2021Q2

REPORT INFORMATION
  Report Type: Spontaneous
  Country: CN (occurrence: CN)
  Receive Date: 20170302
  Receipt Date: 20210414
  Transmission Date: 20210716
  Serious: Yes (Other)
  Sender: FDA-Public Use
  Company Number: CN-BRISTOL-MYERS SQUIBB COMPANY-BMS-2017-017682

PATIENT
  Age: 40 Year
  Sex: Male

DRUGS (5)
  1. DASATINIB. [Suspect]
     Active Substance: DASATINIB
     Indication: CHRONIC MYELOID LEUKAEMIA
     Dosage: 70 MG, BID
     Route: 065
  2. IMATINIB. [Concomitant]
     Active Substance: IMATINIB MESYLATE
     Dosage: 70 MG, QD
     Route: 065
     Dates: start: 200710
  3. DASATINIB. [Suspect]
     Active Substance: DASATINIB
     Dosage: 70 MG, EVERY ANOTHER DAY
     Route: 065
     Dates: start: 200709
  4. IMATINIB. [Concomitant]
     Active Substance: IMATINIB MESYLATE
     Indication: CHRONIC MYELOID LEUKAEMIA
     Dosage: 800 MG, QD
     Route: 065
     Dates: start: 200702, end: 200709
  5. IMATINIB. [Concomitant]
     Active Substance: IMATINIB MESYLATE
     Dosage: 600 MG, UNK
     Route: 065
     Dates: start: 200709

REACTIONS (5)
  - Pericardial effusion [Unknown]
  - Anxiety [Unknown]
  - Off label use [Unknown]
  - Pleural effusion [Unknown]
  - Feeling abnormal [Unknown]
